FAERS Safety Report 8265148-2 (Version None)
Quarter: 2012Q2

REPORT INFORMATION
  Report Type: 
  Country: None (occurrence: None)
  Receive Date: 20120403
  Receipt Date: 20120323
  Transmission Date: 20120825
  Serious: Yes (Hospitalization)
  Sender: FDA-Public Use
  Company Number: 2012SP016684

PATIENT
  Age: 33 Year
  Sex: Female

DRUGS (4)
  1. REMERON [Suspect]
     Indication: PRODUCT USED FOR UNKNOWN INDICATION
     Dosage: 30 MG;PO
     Route: 048
     Dates: start: 20110519, end: 20110519
  2. ESCITALOPRAM OXALATE [Suspect]
     Indication: PRODUCT USED FOR UNKNOWN INDICATION
     Dosage: 10 MG;PO
     Route: 048
     Dates: start: 20110519, end: 20110519
  3. TRUXAL (CHLORPROTHIXENE) [Suspect]
     Indication: PRODUCT USED FOR UNKNOWN INDICATION
     Dosage: 15 MG;PO
     Route: 048
     Dates: start: 20110519, end: 20110519
  4. LORAZEPAM [Suspect]
     Indication: PRODUCT USED FOR UNKNOWN INDICATION
     Dosage: 1 MG;PO
     Route: 048
     Dates: start: 20110519, end: 20110519

REACTIONS (9)
  - POISONING [None]
  - COMA [None]
  - SUICIDE ATTEMPT [None]
  - TACHYCARDIA [None]
  - HYPOKALAEMIA [None]
  - RESPIRATORY FAILURE [None]
  - MULTIPLE DRUG OVERDOSE INTENTIONAL [None]
  - ELECTROCARDIOGRAM QT PROLONGED [None]
  - PNEUMONIA ASPIRATION [None]
